FAERS Safety Report 6286808-9 (Version None)
Quarter: 2009Q3

REPORT INFORMATION
  Report Type: 
  Country: None (occurrence: None)
  Receive Date: 20090727
  Receipt Date: 20090727
  Transmission Date: 20100115
  Serious: No
  Sender: FDA-Public Use
  Company Number: None

PATIENT
  Age: 56 Year
  Sex: Female
  Weight: 60.8 kg

DRUGS (1)
  1. PACLITAXEL [Suspect]
     Indication: UTERINE CANCER
     Dosage: 282 MG X1 IV
     Route: 042
     Dates: start: 20090720

REACTIONS (5)
  - CHILLS [None]
  - HYPERTENSION [None]
  - INFUSION RELATED REACTION [None]
  - RESTLESSNESS [None]
  - TREMOR [None]
